FAERS Safety Report 8394589 (Version 8)
Quarter: 2013Q3

REPORT INFORMATION
  Report Type: Spontaneous
  Country: JP (occurrence: JP)
  Receive Date: 20120207
  Receipt Date: 20130828
  Transmission Date: 20140515
  Serious: Yes (Life-Threatening, Hospitalization)
  Sender: FDA-Public Use
  Company Number: JP-GLAXOSMITHKLINE-B0779167A

PATIENT
  Age: 17 Year
  Sex: Female

DRUGS (3)
  1. LAMICTAL [Suspect]
     Indication: JUVENILE MYOCLONIC EPILEPSY
     Dosage: 25MG ALTERNATE DAYS
     Route: 048
     Dates: start: 20120121
  2. DEPAKENE [Concomitant]
     Indication: JUVENILE MYOCLONIC EPILEPSY
     Route: 048
     Dates: start: 200902, end: 20120131
  3. MYSTAN [Concomitant]
     Indication: JUVENILE MYOCLONIC EPILEPSY
     Dosage: 10MG TWICE PER DAY
     Route: 048
     Dates: start: 200902, end: 20120131

REACTIONS (49)
  - Stevens-Johnson syndrome [Recovered/Resolved with Sequelae]
  - Rash [Recovered/Resolved]
  - Pyrexia [Recovered/Resolved]
  - Disseminated intravascular coagulation [Unknown]
  - Renal failure acute [Not Recovered/Not Resolved]
  - Conjunctival hyperaemia [Unknown]
  - Abdominal pain [Unknown]
  - Altered state of consciousness [Unknown]
  - Haemorrhage subcutaneous [Unknown]
  - Respiratory failure [Unknown]
  - Muscular weakness [Unknown]
  - Diarrhoea [Unknown]
  - Decubitus ulcer [Unknown]
  - Haemorrhage [Unknown]
  - Drug hypersensitivity [Unknown]
  - Aspartate aminotransferase increased [Unknown]
  - Alanine aminotransferase increased [Unknown]
  - Blood lactate dehydrogenase increased [Unknown]
  - Blood creatinine increased [Unknown]
  - Blood potassium decreased [Unknown]
  - Blood creatine phosphokinase increased [Unknown]
  - C-reactive protein increased [Unknown]
  - White blood cell count increased [Unknown]
  - Platelet count decreased [Unknown]
  - Prothrombin level decreased [Unknown]
  - Activated partial thromboplastin time prolonged [Unknown]
  - Blood fibrinogen decreased [Unknown]
  - Fibrin degradation products increased [Unknown]
  - Fibrin D dimer increased [Unknown]
  - Ocular hyperaemia [Unknown]
  - Lip erosion [Unknown]
  - Oral mucosa erosion [Unknown]
  - Scab [Unknown]
  - Generalised erythema [Unknown]
  - Blister [Unknown]
  - Hepatic function abnormal [Unknown]
  - Multi-organ failure [Unknown]
  - Drug eruption [Unknown]
  - Enanthema [Unknown]
  - Rhabdomyolysis [Unknown]
  - Pancytopenia [Unknown]
  - Red blood cell count decreased [Unknown]
  - Coagulation test abnormal [Unknown]
  - Antinuclear antibody positive [Unknown]
  - Respiratory disorder [Unknown]
  - Condition aggravated [Unknown]
  - Protein-losing gastroenteropathy [Unknown]
  - Lymphocyte stimulation test positive [Unknown]
  - Toxic epidermal necrolysis [Unknown]
